FAERS Safety Report 8533165-0 (Version None)
Quarter: 2012Q3

REPORT INFORMATION
  Report Type: 
  Country: None (occurrence: None)
  Receive Date: 20120724
  Receipt Date: 20120717
  Transmission Date: 20120928
  Serious: Yes (Hospitalization, Other)
  Sender: FDA-Public Use
  Company Number: RS-JNJFOC-20120613868

PATIENT
  Age: 66 Year
  Sex: Female
  Weight: 50 kg

DRUGS (8)
  1. ACETAMINOPHEN [Concomitant]
     Indication: BONE PAIN
     Route: 065
  2. MEGACE [Concomitant]
     Route: 048
  3. BERODUAL [Concomitant]
     Route: 065
  4. TRAMADOL HCL [Suspect]
     Indication: PAIN
     Route: 065
  5. BECLOFORTE [Concomitant]
     Route: 065
  6. HYDROMORPHONE HCL [Suspect]
     Indication: CANCER PAIN
     Route: 048
     Dates: start: 20120218, end: 20120220
  7. DURAGESIC-100 [Suspect]
     Indication: PAIN
     Route: 062
     Dates: start: 20120218, end: 20120218
  8. ORAMORPH SR [Concomitant]
     Indication: BONE PAIN
     Route: 048

REACTIONS (4)
  - CONDITION AGGRAVATED [None]
  - HYPERSENSITIVITY [None]
  - ACUTE PULMONARY OEDEMA [None]
  - ADVERSE DRUG REACTION [None]
